FAERS Safety Report 9548633 (Version 1)
Quarter: 2013Q3

REPORT INFORMATION
  Report Type: Spontaneous
  Country: US (occurrence: None)
  Receive Date: 20130919
  Receipt Date: 20130919
  Transmission Date: 20140515
  Serious: Yes (Other)
  Sender: FDA-Public Use
  Company Number: 2013AP008052

PATIENT
  Age: 59 Year
  Sex: Female

DRUGS (2)
  1. ZIPRASIDONE HYDROCHLORIDE [Suspect]
     Indication: BIPOLAR DISORDER
     Route: 048
     Dates: start: 20130628, end: 20130805
  2. ABILIFY [Concomitant]

REACTIONS (2)
  - Drug hypersensitivity [None]
  - Drug intolerance [None]
